FAERS Safety Report 5389862-1 (Version None)
Quarter: 2007Q3

REPORT INFORMATION
  Report Type: 
  Country: None (occurrence: None)
  Receive Date: 20070718
  Receipt Date: 20070712
  Transmission Date: 20080115
  Serious: Yes (Other)
  Sender: FDA-Public Use
  Company Number: PHBS2007BR11862

PATIENT
  Age: 63 Year
  Sex: Female

DRUGS (1)
  1. FORASEQ [Suspect]
     Indication: DYSPNOEA

REACTIONS (3)
  - DRUG DEPENDENCE [None]
  - DYSPNOEA [None]
  - PALPITATIONS [None]
